FAERS Safety Report 7732360-8 (Version None)
Quarter: 2011Q3

REPORT INFORMATION
  Report Type: 
  Country: None (occurrence: None)
  Receive Date: 20110906
  Receipt Date: 20110901
  Transmission Date: 20111222
  Serious: Yes (Other)
  Sender: FDA-Public Use
  Company Number: DE-PFIZER INC-2011194844

PATIENT
  Age: 2 Year
  Sex: Male

DRUGS (1)
  1. ZYVOX [Suspect]
     Dosage: 330 MG, UNK
     Route: 042
     Dates: start: 20110818

REACTIONS (2)
  - PETECHIAE [None]
  - PLATELET FUNCTION TEST ABNORMAL [None]
